FAERS Safety Report 13279369 (Version 1)
Quarter: 2017Q1

REPORT INFORMATION
  Report Type: Spontaneous
  Country: FR (occurrence: FR)
  Receive Date: 20170228
  Receipt Date: 20170228
  Transmission Date: 20170428
  Serious: Yes (Other)
  Sender: FDA-Public Use
  Company Number: FR-PFM-2017-01108

PATIENT
  Age: 15 Month
  Sex: Male
  Weight: 11.6 kg

DRUGS (2)
  1. HEMANGIOL [Suspect]
     Active Substance: PROPRANOLOL HYDROCHLORIDE
     Indication: INFANTILE HAEMANGIOMA
     Dosage: 11 MG (1MG/KG), BID (2/DAY) MORNING AND EVENING
     Route: 048
     Dates: start: 20161005, end: 20170120
  2. ZYMAD [Concomitant]
     Active Substance: CHOLECALCIFEROL
     Indication: VITAMIN SUPPLEMENTATION
     Dosage: 3 DROPS DAILY IN THE MORNING
     Route: 048

REACTIONS (5)
  - Off label use [Unknown]
  - Malaise [Recovered/Resolved]
  - Loss of consciousness [Recovered/Resolved]
  - Drug administered to patient of inappropriate age [Unknown]
  - Bradycardia [Recovered/Resolved]

NARRATIVE: CASE EVENT DATE: 20170120
